FAERS Safety Report 6930796-6 (Version None)
Quarter: 2010Q3

REPORT INFORMATION
  Report Type: 
  Country: None (occurrence: None)
  Receive Date: 20100818
  Receipt Date: 20100804
  Transmission Date: 20110219
  Serious: Yes (Hospitalization, Other)
  Sender: FDA-Public Use
  Company Number: BR-MEDIMMUNE-MEDI-0011404

PATIENT
  Sex: Male
  Weight: 4 kg

DRUGS (13)
  1. SYNAGIS [Suspect]
     Indication: BRONCHOPULMONARY DYSPLASIA
     Route: 065
     Dates: start: 20100506
  2. SYNAGIS [Suspect]
  3. OXACILLIN [Concomitant]
     Route: 048
  4. AMIKACIN [Concomitant]
     Route: 048
  5. VANCOMYCIN [Concomitant]
     Route: 048
  6. CECEPINI [Concomitant]
     Route: 048
  7. NEUPOGEN [Concomitant]
     Route: 048
  8. UNKNOWN DIURETIC DRUG [Concomitant]
     Route: 048
  9. CAFFEINE [Concomitant]
     Route: 048
  10. DOMPERIDONE [Concomitant]
     Dates: start: 20100517
  11. FERROUS SULFATE [Concomitant]
     Dates: start: 20100517
  12. ENDOFOLIN [Concomitant]
     Indication: VITAMIN SUPPLEMENTATION
     Route: 048
     Dates: start: 20100601
  13. VITAMIN AD [Concomitant]
     Indication: VITAMIN SUPPLEMENTATION
     Route: 048
     Dates: start: 20100608

REACTIONS (8)
  - ANAEMIA [None]
  - BRONCHIOLITIS [None]
  - GASTROOESOPHAGEAL REFLUX DISEASE [None]
  - INCREASED BRONCHIAL SECRETION [None]
  - INFLUENZA [None]
  - NASAL CONGESTION [None]
  - RESPIRATORY ARREST [None]
  - RESPIRATORY SYNCYTIAL VIRUS INFECTION [None]
